FAERS Safety Report 22023245 (Version 1)
Quarter: 2023Q1

REPORT INFORMATION
  Report Type: Spontaneous
  Country: US (occurrence: US)
  Receive Date: 20230223
  Receipt Date: 20230223
  Transmission Date: 20230417
  Serious: No
  Sender: FDA-Public Use
  Company Number: US-ABBVIE-4315683

PATIENT

DRUGS (25)
  1. VENCLEXTA [Suspect]
     Active Substance: VENETOCLAX
     Indication: Follicle centre lymphoma diffuse small cell lymphoma
     Dosage: 100 MG
     Route: 048
     Dates: start: 20230113
  2. Pneumococcal polyvalent vaccine [Concomitant]
     Indication: Product used for unknown indication
     Dosage: SYRINGE-25MCG/0.5ML ONE INJECTION AS DIRECTED
  3. VIAGRA [Concomitant]
     Active Substance: SILDENAFIL CITRATE
     Indication: Product used for unknown indication
     Dosage: 100 MG
     Route: 048
  4. CALCIUM CARBONATE\CHOLECALCIFEROL [Concomitant]
     Active Substance: CALCIUM CARBONATE\CHOLECALCIFEROL
     Indication: Product used for unknown indication
     Dosage: 600MG-5MCG (200 UNIT)
     Route: 048
  5. TOPROL XL [Concomitant]
     Active Substance: METOPROLOL SUCCINATE
     Indication: Product used for unknown indication
     Dosage: 25 MG
     Route: 048
  6. NEURONTIN [Concomitant]
     Active Substance: GABAPENTIN
     Indication: Product used for unknown indication
     Dosage: 300 MG
     Route: 048
  7. Ascorbate calcium multivit-min [Concomitant]
     Indication: Product used for unknown indication
     Dosage: 1000MG DAILY. VITAMIN C ORAL TABLET CHEWABLE
     Route: 048
     Dates: start: 20140522
  8. PROSCAR [Concomitant]
     Active Substance: FINASTERIDE
     Indication: Product used for unknown indication
     Dosage: 5 MG
     Route: 048
  9. HYDROCORTISONE [Concomitant]
     Active Substance: HYDROCORTISONE
     Indication: Product used for unknown indication
     Dosage: LOTION-2.5% 2 TIMES A DAY
     Route: 061
  10. ZOCOR [Concomitant]
     Active Substance: SIMVASTATIN
     Indication: Product used for unknown indication
     Dosage: TAKE 1 TABLET (20MG TOTAL) BY MOUTH NIGHTLY
     Route: 048
  11. FERROUS SULFATE [Concomitant]
     Active Substance: FERROUS SULFATE
     Indication: Product used for unknown indication
     Dosage: 325 MG
     Route: 048
  12. BACTRIM DS [Concomitant]
     Active Substance: SULFAMETHOXAZOLE\TRIMETHOPRIM
     Indication: Product used for unknown indication
     Dosage: TIME INTERVAL: 0.33333333 WEEKS: 800-160MG EVERY MONDAY, WEDNESDAY AND FRIDAY
     Route: 048
  13. ZOVIRAX [Concomitant]
     Active Substance: ACYCLOVIR
     Indication: Herpes zoster
     Dosage: TAKE 1 TABLET BY MOUTH TWO TIMES A DAY, 400 MG
     Route: 048
  14. MAGNESIUM OXIDE [Concomitant]
     Active Substance: MAGNESIUM OXIDE
     Indication: Product used for unknown indication
     Dosage: 400 MG
     Route: 048
  15. PROTONIX [Concomitant]
     Active Substance: PANTOPRAZOLE SODIUM
     Indication: Product used for unknown indication
     Dosage: DR/EC-40MG
     Route: 048
  16. Iron PS complex-B12 [Concomitant]
     Indication: Product used for unknown indication
     Dosage: 150-25-1MG-MCG-MG/65MG
     Route: 048
     Dates: start: 20140522
  17. ASPIRIN [Concomitant]
     Active Substance: ASPIRIN
     Indication: Product used for unknown indication
     Dosage: 81 MG
     Route: 048
  18. GAMMAGARD LIQUID [Concomitant]
     Active Substance: HUMAN IMMUNOGLOBULIN G
     Indication: Product used for unknown indication
     Dosage: INFUSION SOLUTION-10% 40G
  19. ZYLOPRIM [Concomitant]
     Active Substance: ALLOPURINOL
     Indication: Tumour lysis syndrome
     Dosage: TAKE DURING CYCLE 1 TO PREVENT TUMOR LYSIS SYNDROME, 300 MG
     Route: 048
  20. NIZORAL [Concomitant]
     Active Substance: KETOCONAZOLE
     Indication: Rash
     Dosage: CREAM-2% RASH ON BACK AND FEET TWICE DAILY AS NEEDED
     Route: 061
  21. ACETAMINOPHEN [Concomitant]
     Active Substance: ACETAMINOPHEN
     Indication: Product used for unknown indication
     Dosage: 325 MG
     Route: 048
  22. COMPAZINE [Concomitant]
     Active Substance: PROCHLORPERAZINE MALEATE
     Indication: Nausea
     Dosage: 10 MG
     Route: 048
  23. FLONASE [Concomitant]
     Active Substance: FLUTICASONE PROPIONATE
     Indication: Product used for unknown indication
     Dosage: SPRAY-SUSPENSIN-50MCG/ACTUATION/INSTILL 2 SPRAYS
     Route: 045
  24. CIPRO [Concomitant]
     Active Substance: CIPROFLOXACIN HYDROCHLORIDE
     Indication: Product used for unknown indication
     Dosage: 500MG TAKE ONLY DURING PERIODS OF  NEUTROPENIA
     Route: 048
  25. folic acid? [Concomitant]
     Indication: Product used for unknown indication
     Dosage: 150-25-1MG-MCG-MG/65MG
     Route: 048
     Dates: start: 20140522

REACTIONS (1)
  - Off label use [Unknown]
